FAERS Safety Report 9740029 (Version 1)
Quarter: 2013Q4

REPORT INFORMATION
  Report Type: Spontaneous
  Country: US (occurrence: US)
  Receive Date: 20131209
  Receipt Date: 20131209
  Transmission Date: 20140711
  Serious: No
  Sender: FDA-Public Use
  Company Number: US-B.I. PHARMACEUTICALS,INC./RIDGEFIELD-2013-BI-38741BP

PATIENT
  Age: 72 Year
  Sex: Male
  Weight: 132 kg

DRUGS (7)
  1. PRADAXA [Suspect]
     Indication: ATRIAL FIBRILLATION
     Dosage: 300 MG
     Route: 048
     Dates: start: 20131024, end: 20131120
  2. CRESTOR [Concomitant]
     Indication: BLOOD CHOLESTEROL INCREASED
     Dosage: 20 MG
     Route: 048
     Dates: start: 2011
  3. LISINOPRIL HCTZ [Concomitant]
     Indication: HYPERTENSION
     Dosage: STRENGTH: 20 MG-12.5 MG; DAILY DOSE: 20 MG-12.5 MG
     Route: 048
     Dates: start: 2008
  4. ATENOLOL [Concomitant]
     Indication: HYPERTENSION
     Dosage: 150 MG
     Route: 048
     Dates: start: 2008
  5. AMLODIPINE [Concomitant]
     Indication: HYPERTENSION
     Dosage: 5 MG
     Route: 048
     Dates: start: 2010
  6. IBUPROFEN [Concomitant]
     Indication: ARTHRALGIA
     Route: 048
  7. CIPRO [Concomitant]
     Indication: URINARY TRACT INFECTION

REACTIONS (6)
  - Rectal haemorrhage [Not Recovered/Not Resolved]
  - Diarrhoea [Not Recovered/Not Resolved]
  - Pain [Recovered/Resolved]
  - Dyspepsia [Not Recovered/Not Resolved]
  - Abdominal pain [Not Recovered/Not Resolved]
  - Nausea [Not Recovered/Not Resolved]
